FAERS Safety Report 5615919-3 (Version None)
Quarter: 2008Q1

REPORT INFORMATION
  Report Type: 
  Country: None (occurrence: None)
  Receive Date: 20080206
  Receipt Date: 20080125
  Transmission Date: 20080703
  Serious: Yes (Other)
  Sender: FDA-Public Use
  Company Number: FR-PFIZER INC-2008009693

PATIENT
  Sex: Male

DRUGS (3)
  1. CHANTIX [Suspect]
  2. ESCITALOPRAM OXALATE [Concomitant]
  3. FLUINDIONE [Concomitant]

REACTIONS (6)
  - DYSPHONIA [None]
  - INTERNATIONAL NORMALISED RATIO INCREASED [None]
  - NIGHTMARE [None]
  - SLEEP DISORDER [None]
  - TINNITUS [None]
  - VERTIGO [None]
